FAERS Safety Report 5629146-7 (Version None)
Quarter: 2008Q1

REPORT INFORMATION
  Report Type: 
  Country: None (occurrence: None)
  Receive Date: 20080217
  Receipt Date: 20080108
  Transmission Date: 20080703
  Serious: No
  Sender: FDA-Public Use
  Company Number: US-BAXTER-2008BH000189

PATIENT
  Age: 59 Year
  Sex: Male
  Weight: 65 kg

DRUGS (8)
  1. HEPARIN SODIUM [Suspect]
     Indication: PROPHYLAXIS
     Route: 010
     Dates: start: 20071230, end: 20071230
  2. HEPARIN SODIUM [Suspect]
     Route: 010
     Dates: start: 20071230, end: 20071230
  3. HEPARIN SODIUM [Suspect]
     Route: 010
     Dates: start: 20071230, end: 20071230
  4. HEPARIN SODIUM [Suspect]
     Route: 010
     Dates: start: 20071230, end: 20071230
  5. HEPARIN SODIUM [Suspect]
     Route: 010
     Dates: start: 20071230, end: 20071230
  6. HEPARIN SODIUM [Suspect]
     Route: 010
     Dates: start: 20071230, end: 20071230
  7. HEPARIN SODIUM [Suspect]
     Route: 010
     Dates: start: 20071230, end: 20071230
  8. SODIUM CHLORIDE INJ [Concomitant]
     Indication: DRUG USE FOR UNKNOWN INDICATION
     Dosage: DOSE UNIT:UNKNOWN
     Route: 010
     Dates: start: 20071201, end: 20071201

REACTIONS (4)
  - DRY MOUTH [None]
  - HEADACHE [None]
  - NAUSEA [None]
  - VOMITING [None]
